FAERS Safety Report 22345336 (Version 3)
Quarter: 2024Q2

REPORT INFORMATION
  Report Type: Spontaneous
  Country: CN (occurrence: CN)
  Receive Date: 20230519
  Receipt Date: 20240529
  Transmission Date: 20240716
  Serious: Yes (Hospitalization, Other)
  Sender: FDA-Public Use
  Company Number: CN-ORGANON-O2305CHN001299

PATIENT
  Age: 30 Year
  Sex: Female
  Weight: 60.8 kg

DRUGS (10)
  1. FOLLITROPIN BETA [Suspect]
     Active Substance: FOLLITROPIN BETA
     Indication: Ovulation induction
     Dosage: 120IU, QD
     Route: 058
     Dates: start: 20230414, end: 20230418
  2. FOLLITROPIN BETA [Suspect]
     Active Substance: FOLLITROPIN BETA
     Dosage: 125IU, QD
     Route: 058
     Dates: start: 20230419, end: 20230423
  3. HUMEGON [Suspect]
     Active Substance: FOLLITROPIN\LUTEINIZING HORMONE
     Indication: Ovulation induction
     Dosage: 75IU, QD
     Dates: start: 20230414, end: 20230424
  4. HUMEGON [Suspect]
     Active Substance: FOLLITROPIN\LUTEINIZING HORMONE
     Dosage: 225IU, QD
     Dates: start: 20230425, end: 20230425
  5. UROFOLLITROPIN [Suspect]
     Active Substance: UROFOLLITROPIN
     Indication: Ovulation induction
     Dosage: 75IU, QD
     Route: 058
     Dates: start: 20230425, end: 20230425
  6. LUTROPIN ALFA [Suspect]
     Active Substance: LUTROPIN ALFA
     Indication: Ovulation induction
     Dosage: 75IU, QD
     Route: 058
     Dates: start: 20230424, end: 20230424
  7. CHORIOGONADOTROPIN ALFA [Suspect]
     Active Substance: CHORIOGONADOTROPIN ALFA
     Indication: Ovulation induction
     Dosage: 250UG, QD
     Route: 058
     Dates: start: 20230425, end: 20230425
  8. SODIUM CHLORIDE [Concomitant]
     Active Substance: SODIUM CHLORIDE
     Indication: Vehicle solution use
     Dosage: 2ML, QD
     Route: 030
     Dates: start: 20230414, end: 20230424
  9. SODIUM CHLORIDE [Concomitant]
     Active Substance: SODIUM CHLORIDE
     Dosage: 2ML, QD
     Route: 030
     Dates: start: 20230425, end: 20230425
  10. STERILE WATER [Concomitant]
     Active Substance: WATER
     Indication: Vehicle solution use
     Dosage: 1ML, QD
     Route: 058
     Dates: start: 20230425, end: 20230425

REACTIONS (7)
  - Ovarian hyperstimulation syndrome [Recovering/Resolving]
  - Tension [Recovering/Resolving]
  - Abdominal distension [Recovering/Resolving]
  - Abdominal pain [Recovering/Resolving]
  - Dizziness [Recovering/Resolving]
  - Chest discomfort [Recovering/Resolving]
  - Vaginal haemorrhage [Unknown]

NARRATIVE: CASE EVENT DATE: 20230427
